FAERS Safety Report 9752243 (Version 1)
Quarter: 2013Q4

REPORT INFORMATION
  Report Type: Spontaneous
  Country: US (occurrence: None)
  Receive Date: 20131211
  Receipt Date: 20131211
  Transmission Date: 20140711
  Serious: No
  Sender: FDA-Public Use
  Company Number: None

PATIENT
  Age: 89 Year
  Sex: Female
  Weight: 74.84 kg

DRUGS (1)
  1. OXAPROZIN [Suspect]
     Indication: OSTEOPOROSIS
     Dosage: TAKEN BY MOUTH
     Dates: start: 20131128, end: 20131129

REACTIONS (1)
  - Urticaria [None]
